FAERS Safety Report 5048134-5 (Version None)
Quarter: 2006Q3

REPORT INFORMATION
  Report Type: 
  Country: None (occurrence: None)
  Receive Date: 20060711
  Receipt Date: 20060630
  Transmission Date: 20061208
  Serious: Yes (Death, Hospitalization)
  Sender: FDA-Public Use
  Company Number: US-JNJFOC-20060601337

PATIENT
  Sex: Female
  Weight: 76.66 kg

DRUGS (1)
  1. REMICADE [Suspect]
     Indication: CROHN'S DISEASE
     Route: 042

REACTIONS (4)
  - FALL [None]
  - PULMONARY EMBOLISM [None]
  - SYNCOPE [None]
  - THROMBOSIS [None]
